FAERS Safety Report 9058506 (Version 2)
Quarter: 2013Q2

REPORT INFORMATION
  Report Type: Spontaneous
  Country: US (occurrence: US)
  Receive Date: 20130211
  Receipt Date: 20130522
  Transmission Date: 20140414
  Serious: Yes (Life-Threatening, Hospitalization, Disabling, Other)
  Sender: FDA-Public Use
  Company Number: US-MERCK-1301USA012882

PATIENT
  Age: 62 Year
  Sex: Male
  Weight: 77.55 kg

DRUGS (6)
  1. JANUVIA [Suspect]
     Indication: TYPE 2 DIABETES MELLITUS
     Dosage: 100 MG, QD
     Route: 048
     Dates: start: 2011, end: 20120808
  2. METFORMIN HYDROCHLORIDE [Concomitant]
     Indication: DIABETES MELLITUS
     Dosage: TOTAL DAILY DOSE 1000 MG
     Route: 048
     Dates: end: 20120811
  3. NORVASC [Concomitant]
     Indication: HYPERTENSION
     Dosage: TOTAL DAILY DOSE 5 MG
     Route: 048
  4. TOPROL XL TABLETS [Concomitant]
     Indication: HYPERTENSION
     Dosage: TOTAL DAILY DOSE 100 MG
     Route: 048
  5. ZOCOR [Concomitant]
     Indication: BLOOD CHOLESTEROL
     Dosage: TOTAL DAILY DOSE 20 MG
     Route: 048
  6. AMARYL [Concomitant]
     Indication: DIABETES MELLITUS
     Dosage: TOTAL DAILY DOSE 4 MG
     Route: 048
     Dates: start: 201203, end: 201204

REACTIONS (2)
  - Pancreatic carcinoma [Recovered/Resolved]
  - Pruritus [Recovered/Resolved]
